FAERS Safety Report 10593243 (Version 3)
Quarter: 2014Q4

REPORT INFORMATION
  Report Type: Spontaneous
  Country: US (occurrence: US)
  Receive Date: 20141119
  Receipt Date: 20141222
  Transmission Date: 20150529
  Serious: Yes (Hospitalization)
  Sender: FDA-Public Use
  Company Number: US-BAXTER-2014BAX068364

PATIENT
  Age: 62 Year
  Sex: Female

DRUGS (1)
  1. DIANEAL LOW CALCIUM PERITONEAL DIALYSIS SOLUTION WITH DEXTROSE [Suspect]
     Active Substance: CALCIUM CHLORIDE\DEXTROSE\MAGNESIUM CHLORIDE\SODIUM CHLORIDE\SODIUM LACTATE
     Indication: PERITONEAL DIALYSIS
     Dosage: 3 BAGS
     Route: 033
     Dates: end: 20141111

REACTIONS (6)
  - Fungal infection [Unknown]
  - Peritonitis bacterial [Unknown]
  - Peritoneal dialysis complication [Unknown]
  - Peritoneal dialysis complication [Recovered/Resolved]
  - Abdominal pain upper [Unknown]
  - Abdominal distension [Unknown]

NARRATIVE: CASE EVENT DATE: 201409
